FAERS Safety Report 11008232 (Version 1)
Quarter: 2015Q2

REPORT INFORMATION
  Report Type: Spontaneous
  Country: JP (occurrence: JP)
  Receive Date: 20150410
  Receipt Date: 20150410
  Transmission Date: 20150821
  Serious: Yes (Other)
  Sender: FDA-Public Use
  Company Number: JP-BAYER-2015-118195

PATIENT
  Age: 76 Year
  Sex: Female

DRUGS (2)
  1. BAYASPIRIN [Suspect]
     Active Substance: ASPIRIN
     Dosage: UNK
     Route: 048
  2. ADALAT CC [Suspect]
     Active Substance: NIFEDIPINE
     Dosage: UNK
     Route: 048

REACTIONS (1)
  - Interstitial lung disease [None]
